FAERS Safety Report 9684755 (Version 1)
Quarter: 2013Q4

REPORT INFORMATION
  Report Type: Spontaneous
  Country: US (occurrence: US)
  Receive Date: 20131112
  Receipt Date: 20131112
  Transmission Date: 20140711
  Serious: Yes (Other)
  Sender: FDA-Public Use
  Company Number: US-RB-060335-13

PATIENT
  Age: 31 Year
  Sex: Male

DRUGS (4)
  1. SUBOXONE FILM [Suspect]
     Indication: DRUG DEPENDENCE
     Dosage: SUBOXONE FILM; DOSING DETAILS UNKNOWN
     Route: 060
     Dates: start: 201212, end: 201301
  2. SUBOXONE FILM [Suspect]
     Dosage: SUBOXONE FILM; DOSING DETAILS UNKNOWN
     Route: 060
     Dates: start: 2013, end: 2013
  3. HEROIN [Suspect]
     Dosage: DOSING DETAILS UNKNOWN
     Route: 042
     Dates: start: 201301, end: 2013
  4. HEROIN [Suspect]
     Indication: DRUG DEPENDENCE
     Dosage: DOSING DETAILS UNKNOWN
     Route: 042
     Dates: start: 2013

REACTIONS (2)
  - Drug dependence [Not Recovered/Not Resolved]
  - Hepatitis C [Not Recovered/Not Resolved]
